FAERS Safety Report 14605980 (Version 3)
Quarter: 2018Q2

REPORT INFORMATION
  Report Type: Spontaneous
  Country: RU (occurrence: RU)
  Receive Date: 20180307
  Receipt Date: 20180629
  Transmission Date: 20180711
  Serious: Yes (Hospitalization)
  Sender: FDA-Public Use
  Company Number: RU-ASTRAZENECA-2018SE27697

PATIENT
  Age: 79 Year
  Sex: Male
  Weight: 90 kg

DRUGS (7)
  1. BRILINTA [Suspect]
     Active Substance: TICAGRELOR
     Indication: MYOCARDIAL INFARCTION
     Route: 048
     Dates: start: 201707
  2. SORBIFER DURULES [Concomitant]
     Active Substance: FERROUS SULFATE
     Indication: HAEMOGLOBIN DECREASED
  3. DIABETON MB [Concomitant]
     Active Substance: GLICLAZIDE
  4. LIPRIMAR [Concomitant]
     Active Substance: ATORVASTATIN CALCIUM
  5. THROMBO AS [Concomitant]
  6. GLUCOVANCE [Concomitant]
     Active Substance: GLYBURIDE\METFORMIN HYDROCHLORIDE
  7. DIUVER [Concomitant]
     Active Substance: TORSEMIDE

REACTIONS (4)
  - Epistaxis [Not Recovered/Not Resolved]
  - Haemoglobin decreased [Not Recovered/Not Resolved]
  - Angina unstable [Recovered/Resolved]
  - Back pain [Recovered/Resolved]

NARRATIVE: CASE EVENT DATE: 201712
